FAERS Safety Report 17323850 (Version 2)
Quarter: 2020Q1

REPORT INFORMATION
  Report Type: Report from Study
  Country: None (occurrence: US)
  Receive Date: 20200127
  Receipt Date: 20200128
  Transmission Date: 20200409
  Serious: Yes (Other)
  Sender: FDA-Public Use
  Company Number: US-ABBVIE-20K-163-3250756-00

PATIENT
  Sex: Male

DRUGS (1)
  1. HUMIRA [Suspect]
     Active Substance: ADALIMUMAB
     Indication: CROHN^S DISEASE
     Route: 058
     Dates: end: 201911

REACTIONS (3)
  - Upper respiratory tract infection [Recovered/Resolved]
  - Impaired healing [Unknown]
  - Hernia [Unknown]

NARRATIVE: CASE EVENT DATE: 2019
